FAERS Safety Report 25595816 (Version 1)
Quarter: 2025Q3

REPORT INFORMATION
  Report Type: Spontaneous
  Country: US (occurrence: None)
  Receive Date: 20250722
  Receipt Date: 20250722
  Transmission Date: 20251020
  Serious: Yes (Death)
  Sender: FDA-CTU
  Company Number: None

PATIENT
  Age: 81 Year
  Sex: Female

DRUGS (1)
  1. CAPECITABINE [Suspect]
     Active Substance: CAPECITABINE
     Indication: Neoplasm malignant
     Dosage: 3 TABLET (1500MG) BID ORAL ?
     Route: 048
     Dates: start: 20250610, end: 20250703

REACTIONS (1)
  - Death [None]

NARRATIVE: CASE EVENT DATE: 20250709
